FAERS Safety Report 6307913-4 (Version None)
Quarter: 2009Q3

REPORT INFORMATION
  Report Type: 
  Country: None (occurrence: None)
  Receive Date: 20090813
  Receipt Date: 20090811
  Transmission Date: 20100115
  Serious: Yes (Other)
  Sender: FDA-Public Use
  Company Number: CN-JNJFOC-20090803225

PATIENT
  Age: 4 Month
  Sex: Female
  Weight: 6 kg

DRUGS (2)
  1. ANTUSS INFANTS DECONGESTANT + COUGH [Suspect]
     Indication: NASOPHARYNGITIS
  2. UNKNOWN MEDICATION [Concomitant]
     Indication: NASOPHARYNGITIS

REACTIONS (1)
  - ACCIDENTAL OVERDOSE [None]
